FAERS Safety Report 4693029-X (Version None)
Quarter: 2005Q2

REPORT INFORMATION
  Report Type: 
  Country: None (occurrence: None)
  Receive Date: 20050616
  Receipt Date: 20050604
  Transmission Date: 20051028
  Serious: Yes (Other)
  Sender: FDA-Public Use
  Company Number: 2005083968

PATIENT
  Age: 71 Year
  Sex: Female
  Weight: 43.9989 kg

DRUGS (5)
  1. KAOPECTATE (BISMUTH SUBSALICYLATE) [Suspect]
     Indication: DIARRHOEA
     Dosage: UNSPECIFIED AMOUNT, QD,ORAL
     Route: 048
     Dates: start: 19990531
  2. GUANFACINE HYDROCHLORIDE (GUANIFACINE HYDROCHLORIDE) [Concomitant]
  3. SERTRALINE HCL [Concomitant]
  4. FELODIPINE [Concomitant]
  5. MESALAMINE [Suspect]
     Indication: DIARRHOEA
     Dosage: 400 MG
     Dates: start: 20050101

REACTIONS (3)
  - DRUG INEFFECTIVE [None]
  - DYSGEUSIA [None]
  - RENAL FAILURE [None]
